FAERS Safety Report 7999224-6 (Version None)
Quarter: 2011Q4

REPORT INFORMATION
  Report Type: 
  Country: None (occurrence: None)
  Receive Date: 20111221
  Receipt Date: 20111219
  Transmission Date: 20120403
  Serious: Yes (Congenital Anomaly, Other)
  Sender: FDA-Public Use
  Company Number: US-PFIZER INC-2011105747

PATIENT
  Sex: Male
  Weight: 2.84 kg

DRUGS (1)
  1. EFFEXOR XR [Suspect]
     Dosage: 75 MG, 1X/DAY
     Route: 064
     Dates: start: 20090101

REACTIONS (27)
  - MENINGOMYELOCELE [None]
  - UMBILICAL HERNIA [None]
  - SCOLIOSIS [None]
  - LORDOSIS [None]
  - KNEE DEFORMITY [None]
  - FOETAL EXPOSURE DURING PREGNANCY [None]
  - HYDROCELE [None]
  - HYDRONEPHROSIS [None]
  - NERVOUS SYSTEM DISORDER [None]
  - DERMATITIS ATOPIC [None]
  - URINARY TRACT INFECTION [None]
  - PARALYSIS [None]
  - TRICUSPID VALVE INCOMPETENCE [None]
  - OTITIS MEDIA [None]
  - CEREBRAL VENTRICLE DILATATION [None]
  - CELLULITIS [None]
  - CONGENITAL CENTRAL NERVOUS SYSTEM ANOMALY [None]
  - HIP DYSPLASIA [None]
  - MITRAL VALVE INCOMPETENCE [None]
  - ANAEMIA [None]
  - CONGENITAL AQUEDUCTAL STENOSIS [None]
  - MATERNAL DRUGS AFFECTING FOETUS [None]
  - ARNOLD-CHIARI MALFORMATION [None]
  - PULMONARY VALVE INCOMPETENCE [None]
  - UPPER RESPIRATORY TRACT INFECTION [None]
  - HYDROCEPHALUS [None]
  - VESICOURETERIC REFLUX [None]
